FAERS Safety Report 19264489 (Version 1)
Quarter: 2021Q2

REPORT INFORMATION
  Report Type: Spontaneous
  Country: US (occurrence: US)
  Receive Date: 20210517
  Receipt Date: 20210517
  Transmission Date: 20210717
  Serious: Yes (Other)
  Sender: FDA-Public Use
  Company Number: None

PATIENT
  Age: 65 Year
  Sex: Female
  Weight: 81.65 kg

DRUGS (1)
  1. PATADAY ONCE DAILY RELIEF [Suspect]
     Active Substance: OLOPATADINE HYDROCHLORIDE
     Indication: EYE PRURITUS
     Dosage: ?          QUANTITY:1 DF DOSAGE FORM;?
     Route: 047
     Dates: start: 20201023, end: 20201110

REACTIONS (2)
  - Eye irritation [None]
  - Eye swelling [None]
